FAERS Safety Report 17890583 (Version 2)
Quarter: 2020Q2

REPORT INFORMATION
  Report Type: Spontaneous
  Country: CN (occurrence: CN)
  Receive Date: 20200612
  Receipt Date: 20200618
  Transmission Date: 20200714
  Serious: Yes (Other)
  Sender: FDA-Public Use
  Company Number: CN-ASTRAZENECA-2020SE74281

PATIENT
  Age: 58 Year
  Sex: Female

DRUGS (7)
  1. TAGRISSO [Suspect]
     Active Substance: OSIMERTINIB
     Indication: NON-SMALL CELL LUNG CANCER
     Dosage: 0.5DF UNKNOWN
     Route: 048
     Dates: start: 202003
  2. TRADITIONAL CHINESE MEDICINE [Concomitant]
     Active Substance: HERBALS\HOMEOPATHICS
     Indication: PHYSICAL DISABILITY
  3. TAGRISSO [Suspect]
     Active Substance: OSIMERTINIB
     Indication: NON-SMALL CELL LUNG CANCER
     Route: 048
     Dates: start: 201901
  4. IRESSA [Suspect]
     Active Substance: GEFITINIB
     Indication: NON-SMALL CELL LUNG CANCER
     Route: 048
     Dates: start: 202005
  5. CONMANA [Concomitant]
     Active Substance: ICOTINIB
     Dosage: ONE TABLET PER DAY FOR 3 CONSECUTIVE DAYS
     Dates: end: 201901
  6. CONMANA [Concomitant]
     Active Substance: ICOTINIB
     Dates: start: 202003
  7. TAGRISSO [Suspect]
     Active Substance: OSIMERTINIB
     Indication: NON-SMALL CELL LUNG CANCER
     Dosage: 0.5DF UNKNOWN
     Route: 048
     Dates: start: 201903

REACTIONS (7)
  - Taste disorder [Recovering/Resolving]
  - Malignant neoplasm progression [Recovering/Resolving]
  - Drug ineffective [Unknown]
  - Cough [Recovering/Resolving]
  - Bone pain [Recovering/Resolving]
  - Acquired gene mutation [Unknown]
  - Product use issue [Unknown]
